FAERS Safety Report 11592252 (Version 1)
Quarter: 2015Q4

REPORT INFORMATION
  Report Type: Spontaneous
  Country: IT (occurrence: IT)
  Receive Date: 20151005
  Receipt Date: 20151005
  Transmission Date: 20160304
  Serious: Yes (Other)
  Sender: FDA-Public Use
  Company Number: IT-ACCORD-034135

PATIENT
  Age: 54 Year
  Sex: Female

DRUGS (1)
  1. PACLITAXEL/PACLITAXEL LIPOSOME [Suspect]
     Active Substance: PACLITAXEL
     Indication: BREAST CANCER
     Dosage: 80 MG/M2 WEEKLY, AFTER 3 MONTH,FREQUENCY PROLONGED TO ONCE IN 14 DAYS, THEN DOSE REDUCED TO 50MG/M2
     Dates: start: 201004

REACTIONS (2)
  - Alopecia [Unknown]
  - Diabetic neuropathy [Unknown]
